FAERS Safety Report 8287553-0 (Version None)
Quarter: 2012Q2

REPORT INFORMATION
  Report Type: 
  Country: None (occurrence: None)
  Receive Date: 20120411
  Receipt Date: 20120328
  Transmission Date: 20120825
  Serious: Yes (Other)
  Sender: FDA-Public Use
  Company Number: FK201200954

PATIENT
  Age: 64 Year
  Sex: Male

DRUGS (2)
  1. FLUOROURACIL [Suspect]
     Indication: OESOPHAGEAL CARCINOMA
     Dosage: 1300 MG/BODY
  2. CISPLATIN [Suspect]
     Indication: OESOPHAGEAL CARCINOMA
     Dosage: 130 MG/BODY

REACTIONS (7)
  - DECREASED APPETITE [None]
  - EROSIVE OESOPHAGITIS [None]
  - OESOPHAGITIS ULCERATIVE [None]
  - STOMATITIS [None]
  - PULMONARY FIBROSIS [None]
  - RADIATION PNEUMONITIS [None]
  - SKIN HYPERPIGMENTATION [None]
